FAERS Safety Report 26111043 (Version 1)
Quarter: 2025Q4

REPORT INFORMATION
  Report Type: Spontaneous
  Country: US (occurrence: US)
  Receive Date: 20251202
  Receipt Date: 20251202
  Transmission Date: 20260117
  Serious: No
  Sender: TOLMAR
  Company Number: US-Tolmar-TLM-2025-08961

PATIENT

DRUGS (3)
  1. LEUPROLIDE ACETATE [Suspect]
     Active Substance: LEUPROLIDE ACETATE
     Indication: Hypothalamic hamartoma
     Route: 030
  2. ELIGARD [Suspect]
     Active Substance: LEUPROLIDE ACETATE
     Indication: Hypothalamic hamartoma
     Route: 030
  3. TRIPTORELIN [Suspect]
     Active Substance: TRIPTORELIN
     Indication: Hypothalamic hamartoma
     Dosage: (120MCG/KG ?Q3WKS)
     Route: 065

REACTIONS (2)
  - Injection site abscess sterile [Unknown]
  - Off label use [Unknown]
